FAERS Safety Report 8537570-8 (Version None)
Quarter: 2012Q3

REPORT INFORMATION
  Report Type: 
  Country: None (occurrence: None)
  Receive Date: 20120725
  Receipt Date: 20120720
  Transmission Date: 20120928
  Serious: Yes (Hospitalization)
  Sender: FDA-Public Use
  Company Number: CA-B.I. PHARMACEUTICALS,INC./RIDGEFIELD-2012-CN-01576CN

PATIENT
  Age: 91 Year
  Sex: Female

DRUGS (7)
  1. PRADAXA [Suspect]
     Indication: ATRIAL FIBRILLATION
     Dosage: 220 MG
     Dates: start: 20120531, end: 20120612
  2. BISOPROLOL FUMARATE [Concomitant]
  3. ALDACTONE [Concomitant]
  4. NITROLINGUAL [Concomitant]
     Dosage: AS NEEDED
     Route: 060
  5. ALENDRONATE SODIUM [Concomitant]
  6. TOLOXIN [Concomitant]
  7. CRESTOR [Concomitant]

REACTIONS (1)
  - MYOCARDIAL INFARCTION [None]
